FAERS Safety Report 17855377 (Version 1)
Quarter: 2020Q2

REPORT INFORMATION
  Report Type: Spontaneous
  Country: US (occurrence: US)
  Receive Date: 20200603
  Receipt Date: 20200603
  Transmission Date: 20200714
  Serious: Yes (Hospitalization)
  Sender: FDA-Public Use
  Company Number: None

PATIENT
  Age: 62 Year
  Sex: Female
  Weight: 123 kg

DRUGS (5)
  1. ALLOPURINOL 100 MG [Concomitant]
     Active Substance: ALLOPURINOL
  2. SYNTHROID [Concomitant]
     Active Substance: LEVOTHYROXINE SODIUM
  3. KEFLEX [Concomitant]
     Active Substance: CEPHALEXIN
  4. COSENTYX [Suspect]
     Active Substance: SECUKINUMAB
     Indication: PSORIASIS
     Dates: start: 20200210, end: 20200411
  5. BENICAR HCT [Concomitant]
     Active Substance: HYDROCHLOROTHIAZIDE\OLMESARTAN MEDOXOMIL

REACTIONS (2)
  - Oropharyngeal pain [None]
  - Neutropenia [None]

NARRATIVE: CASE EVENT DATE: 20200508
